FAERS Safety Report 6260575-7 (Version None)
Quarter: 2009Q3

REPORT INFORMATION
  Report Type: 
  Country: None (occurrence: None)
  Receive Date: 20090708
  Receipt Date: 20090705
  Transmission Date: 20100115
  Serious: Yes (Death, Hospitalization)
  Sender: FDA-Public Use
  Company Number: NL-CELGENEUS-114-21880-09060507

PATIENT
  Sex: Male

DRUGS (1)
  1. REVLIMID [Suspect]
     Indication: CHRONIC LYMPHOCYTIC LEUKAEMIA RECURRENT
     Route: 048
     Dates: start: 20090225, end: 20090501

REACTIONS (4)
  - ARTHRITIS BACTERIAL [None]
  - CANDIDA SEPSIS [None]
  - CHRONIC LYMPHOCYTIC LEUKAEMIA [None]
  - RENAL FAILURE [None]
